FAERS Safety Report 6681807-7 (Version None)
Quarter: 2010Q2

REPORT INFORMATION
  Report Type: 
  Country: None (occurrence: None)
  Receive Date: 20100414
  Receipt Date: 20100405
  Transmission Date: 20101027
  Serious: Yes (Other)
  Sender: FDA-Public Use
  Company Number: US-AMGEN-QUU403827

PATIENT
  Sex: Female

DRUGS (4)
  1. NPLATE [Suspect]
     Indication: IDIOPATHIC THROMBOCYTOPENIC PURPURA
     Dates: start: 20090126, end: 20091125
  2. CORTICOSTEROIDS [Concomitant]
  3. IMMU-G [Concomitant]
  4. AZATHIOPRINE [Concomitant]

REACTIONS (1)
  - URTICARIA [None]
